FAERS Safety Report 7503648-0 (Version None)
Quarter: 2011Q2

REPORT INFORMATION
  Report Type: 
  Country: None (occurrence: None)
  Receive Date: 20110524
  Receipt Date: 20110524
  Transmission Date: 20111010
  Serious: Yes (Hospitalization)
  Sender: FDA-Public Use
  Company Number: None

PATIENT
  Sex: Male
  Weight: 104 kg

DRUGS (16)
  1. ONDNSETRON -ZOFRAN- [Concomitant]
  2. FENTANYL [Concomitant]
  3. HYDRALAZINE HCL [Concomitant]
  4. NEURONTIN [Concomitant]
  5. ZOCOR [Concomitant]
  6. LINEZOLID [Suspect]
     Indication: OSTEOMYELITIS
     Dosage: 600 MG EVERY 12 HOURS PO
     Route: 048
     Dates: start: 20110510, end: 20110515
  7. CYMBALTA [Concomitant]
  8. WARFARIN -JANTOVEN- [Concomitant]
  9. PROTONIX [Concomitant]
  10. METOPROLOL -LOPRESSOR- [Concomitant]
  11. TRIAMTERENE AND HYDROCHLOROTHIAZIDE [Concomitant]
  12. HUMALOG [Concomitant]
  13. HUMALOG [Concomitant]
  14. TOPAMAX [Concomitant]
  15. DILAUDID [Concomitant]
  16. ASPIRIN [Concomitant]

REACTIONS (2)
  - GRAND MAL CONVULSION [None]
  - VOMITING [None]
